FAERS Safety Report 10586330 (Version 2)
Quarter: 2014Q4

REPORT INFORMATION
  Report Type: Spontaneous
  Country: US (occurrence: US)
  Receive Date: 20141117
  Receipt Date: 20141117
  Transmission Date: 20150529
  Serious: No
  Sender: FDA-Public Use
  Company Number: US-HORIZON-DUE-0044-2014

PATIENT
  Age: 55 Year
  Sex: Female

DRUGS (1)
  1. DUEXIS [Suspect]
     Active Substance: FAMOTIDINE\IBUPROFEN
     Indication: BACK PAIN
     Dosage: 2-3 TIMES PER DAY AS NEEDED FOR THE LAST 2 MONTH
     Dates: end: 20140718

REACTIONS (1)
  - Hepatic enzyme abnormal [Recovered/Resolved]
